FAERS Safety Report 21531265 (Version 1)
Quarter: 2022Q4

REPORT INFORMATION
  Report Type: Spontaneous
  Country: US (occurrence: US)
  Receive Date: 20221031
  Receipt Date: 20221031
  Transmission Date: 20230113
  Serious: Yes (Other)
  Sender: FDA-Public Use
  Company Number: US-ELI_LILLY_AND_COMPANY-US202210009778

PATIENT
  Age: 49 Year
  Sex: Female

DRUGS (2)
  1. MOUNJARO [Suspect]
     Active Substance: TIRZEPATIDE
     Indication: Weight decreased
     Dosage: UNK UNK, UNKNOWN
     Route: 065
     Dates: start: 20221017, end: 20221017
  2. DRAMAMINE [Concomitant]
     Active Substance: DIMENHYDRINATE
     Indication: Product used for unknown indication
     Dosage: UNK UNK, UNKNOWN
     Route: 065

REACTIONS (17)
  - Hypoglycaemia [Unknown]
  - Panic attack [Unknown]
  - Disorientation [Unknown]
  - Paraesthesia oral [Unknown]
  - Blood glucose increased [Unknown]
  - Feeling abnormal [Unknown]
  - Body temperature increased [Unknown]
  - Myalgia [Unknown]
  - Insomnia [Unknown]
  - Eating disorder symptom [Unknown]
  - Tremor [Unknown]
  - Visual impairment [Unknown]
  - Panic reaction [Unknown]
  - Dizziness [Unknown]
  - Off label use [Unknown]
  - Fatigue [Unknown]
  - Nausea [Unknown]

NARRATIVE: CASE EVENT DATE: 20221017
